FAERS Safety Report 8611556-7 (Version None)
Quarter: 2012Q3

REPORT INFORMATION
  Report Type: 
  Country: None (occurrence: None)
  Receive Date: 20120822
  Receipt Date: 20120816
  Transmission Date: 20120928
  Serious: Yes (Hospitalization, Other)
  Sender: FDA-Public Use
  Company Number: PHHY2012AU024957

PATIENT
  Sex: Male

DRUGS (4)
  1. CLOZARIL [Suspect]
     Indication: SCHIZOPHRENIA
     Dosage: 50 MG, UNK
     Dates: start: 19991110, end: 20120320
  2. CLOZARIL [Suspect]
     Dosage: UNK
     Dates: start: 20120329
  3. CLOZARIL [Suspect]
     Dosage: UNK
     Dates: start: 20120816
  4. VALPROATE SODIUM [Suspect]
     Dates: start: 20100101, end: 20120320

REACTIONS (5)
  - NEUTROPENIA [None]
  - ANAEMIA [None]
  - PSYCHOTIC DISORDER [None]
  - MENTAL IMPAIRMENT [None]
  - LEUKOPENIA [None]
